FAERS Safety Report 14927690 (Version 1)
Quarter: 2018Q2

REPORT INFORMATION
  Report Type: Spontaneous
  Country: US (occurrence: US)
  Receive Date: 20180523
  Receipt Date: 20180523
  Transmission Date: 20180711
  Serious: No
  Sender: FDA-Public Use
  Company Number: US-PFIZER INC-2018209741

PATIENT
  Age: 75 Year
  Sex: Male

DRUGS (1)
  1. EUCRISA [Suspect]
     Active Substance: CRISABOROLE
     Dosage: UNK, AS NEEDED (APPLY DAILY TO HANDS AS NEEDED AS DIRECTED)
     Dates: start: 201803

REACTIONS (2)
  - Pruritus [Unknown]
  - Dry skin [Unknown]
